FAERS Safety Report 11337366 (Version 1)
Quarter: 2015Q3

REPORT INFORMATION
  Report Type: Spontaneous
  Country: US (occurrence: US)
  Receive Date: 20150803
  Receipt Date: 20150803
  Transmission Date: 20151125
  Serious: Yes (Death)
  Sender: FDA-Public Use
  Company Number: US-ELI_LILLY_AND_COMPANY-US200905006001

PATIENT
  Age: 25 Year
  Sex: Male

DRUGS (3)
  1. GEODON [Concomitant]
     Active Substance: ZIPRASIDONE HYDROCHLORIDE\ZIPRASIDONE MESYLATE
  2. ZYPREXA [Suspect]
     Active Substance: OLANZAPINE
     Dosage: 2.5 MG, UNK
  3. ZYPREXA [Suspect]
     Active Substance: OLANZAPINE

REACTIONS (2)
  - Diabetic ketoacidosis [Fatal]
  - Weight increased [Unknown]

NARRATIVE: CASE EVENT DATE: 200803
